FAERS Safety Report 24713362 (Version 8)
Quarter: 2025Q2

REPORT INFORMATION
  Report Type: Report from Study
  Country: CA (occurrence: CA)
  Receive Date: 20241209
  Receipt Date: 20250409
  Transmission Date: 20250717
  Serious: Yes (Hospitalization)
  Sender: CSL BEHRING
  Company Number: CA-BEH-2024183716

PATIENT
  Age: 53 Year
  Sex: Male
  Weight: 102 kg

DRUGS (21)
  1. HIZENTRA [Suspect]
     Active Substance: HUMAN IMMUNOGLOBULIN G
     Indication: Secondary immunodeficiency
     Dosage: 8 G, QW
     Route: 065
     Dates: start: 20230801
  2. HIZENTRA [Suspect]
     Active Substance: HUMAN IMMUNOGLOBULIN G
     Dosage: 8 G, QW
     Route: 065
     Dates: start: 20241031
  3. HIZENTRA [Suspect]
     Active Substance: HUMAN IMMUNOGLOBULIN G
     Dosage: 8 G, QW
     Route: 065
     Dates: start: 20241107
  4. HIZENTRA [Suspect]
     Active Substance: HUMAN IMMUNOGLOBULIN G
     Dosage: 8 G, QW
     Route: 065
     Dates: start: 20230801
  5. HIZENTRA [Suspect]
     Active Substance: HUMAN IMMUNOGLOBULIN G
     Dosage: 8 G, QW
     Route: 065
     Dates: start: 20230801
  6. HIZENTRA [Suspect]
     Active Substance: HUMAN IMMUNOGLOBULIN G
     Dosage: PRODUCT STRENGTH: 8G
     Route: 065
     Dates: start: 20230801
  7. HIZENTRA [Suspect]
     Active Substance: HUMAN IMMUNOGLOBULIN G
     Dosage: PRODUCT STRENGTH: 8G
     Route: 065
     Dates: start: 20250109
  8. HIZENTRA [Suspect]
     Active Substance: HUMAN IMMUNOGLOBULIN G
     Dosage: PRODUCT STRENGTH: 8G
     Route: 065
     Dates: start: 20230801
  9. HIZENTRA [Suspect]
     Active Substance: HUMAN IMMUNOGLOBULIN G
     Route: 065
     Dates: start: 20250116
  10. VALTREX [Concomitant]
     Active Substance: VALACYCLOVIR HYDROCHLORIDE
  11. SULFATRIM [Concomitant]
     Active Substance: SULFAMETHOXAZOLE\TRIMETHOPRIM
  12. VITAMIN D [Concomitant]
     Active Substance: VITAMIN D NOS
  13. AZITHROMYCIN [Concomitant]
     Active Substance: AZITHROMYCIN
  14. RUXOLITINIB [Concomitant]
     Active Substance: RUXOLITINIB
  15. MONTELUKAST [Concomitant]
     Active Substance: MONTELUKAST
  16. PREDNISONE [Concomitant]
     Active Substance: PREDNISONE
  17. PANTOPRAZOLE [Concomitant]
     Active Substance: PANTOPRAZOLE
  18. Plaxaban [Concomitant]
  19. TACROLIMUS [Concomitant]
     Active Substance: TACROLIMUS
     Route: 048
     Dates: start: 20220506, end: 20241106
  20. ZOMETA [Concomitant]
     Active Substance: ZOLEDRONIC ACID
     Route: 042
     Dates: start: 202104
  21. CALCIUM [Concomitant]
     Active Substance: CALCIUM

REACTIONS (32)
  - Dyspnoea [Recovered/Resolved]
  - Influenza like illness [Unknown]
  - Headache [Unknown]
  - Pyrexia [Unknown]
  - Cough [Unknown]
  - Injection site bruising [Recovered/Resolved]
  - Injection site pain [Recovered/Resolved]
  - Injection site pruritus [Unknown]
  - Infusion site erythema [Unknown]
  - Injection site oedema [Unknown]
  - Injection site oedema [Unknown]
  - Injection site oedema [Unknown]
  - Injection site pain [Unknown]
  - Sputum discoloured [Unknown]
  - Injection site pain [Unknown]
  - Productive cough [Unknown]
  - Injection site oedema [Unknown]
  - Injection site oedema [Unknown]
  - Dysphonia [Unknown]
  - Productive cough [Unknown]
  - Injection site oedema [Unknown]
  - Gastrointestinal disorder [Unknown]
  - Fatigue [Unknown]
  - Diarrhoea [Unknown]
  - Injection site oedema [Unknown]
  - Injection site pruritus [Unknown]
  - Lung disorder [Unknown]
  - Infusion site oedema [Unknown]
  - Lung disorder [Unknown]
  - Constipation [Recovering/Resolving]
  - Faeces hard [Recovering/Resolving]
  - Injection site swelling [Unknown]

NARRATIVE: CASE EVENT DATE: 20240101
